FAERS Safety Report 23342453 (Version 1)
Quarter: 2023Q4

REPORT INFORMATION
  Report Type: Report from Study
  Country: JP (occurrence: JP)
  Receive Date: 20231227
  Receipt Date: 20231227
  Transmission Date: 20240109
  Serious: Yes (Other)
  Sender: FDA-Public Use
  Company Number: JP-RECORDATI RARE DISEASE INC.-2023008426

PATIENT

DRUGS (4)
  1. NEOPROFEN [Suspect]
     Active Substance: IBUPROFEN LYSINE
     Indication: Patent ductus arteriosus
     Dosage: 25.66 MILLIGRAM/DAY
     Route: 042
     Dates: start: 20190527, end: 20190527
  2. LASIX [Concomitant]
     Active Substance: FUROSEMIDE
     Indication: Urine output decreased
     Dosage: UNK
     Route: 042
     Dates: start: 20190524, end: 20190527
  3. ALDACTONE [Concomitant]
     Active Substance: SPIRONOLACTONE
     Indication: Urine output decreased
     Dosage: UNK
     Route: 048
     Dates: start: 20190523, end: 20190527
  4. CALCIUM GLUCONATE [Concomitant]
     Active Substance: CALCIUM GLUCONATE
     Indication: Hypocalcaemia
     Dosage: UNK
     Route: 042
     Dates: start: 20190527, end: 20190530

REACTIONS (1)
  - Patent ductus arteriosus [Unknown]

NARRATIVE: CASE EVENT DATE: 20190527
